FAERS Safety Report 10248275 (Version 2)
Quarter: 2014Q2

REPORT INFORMATION
  Report Type: Not Available
  Country: FR (occurrence: FR)
  Receive Date: 20140620
  Receipt Date: 20140620
  Transmission Date: 20141212
  Serious: Yes (Life-Threatening)
  Sender: FDA-Public Use
  Company Number: FR-BEH-2011028710

PATIENT
  Age: 43 Year
  Sex: Female

DRUGS (3)
  1. PRIVIGEN [Suspect]
     Indication: COMBINED IMMUNODEFICIENCY
     Route: 042
     Dates: start: 201101
  2. PRIVIGEN [Suspect]
  3. PRIVIGEN [Suspect]

REACTIONS (1)
  - Pulmonary arterial hypertension [Unknown]
